FAERS Safety Report 24211640 (Version 3)
Quarter: 2024Q3

REPORT INFORMATION
  Report Type: Report from Study
  Country: US (occurrence: US)
  Receive Date: 20240814
  Receipt Date: 20240830
  Transmission Date: 20241017
  Serious: Yes (Death, Other)
  Sender: GILEAD
  Company Number: US-GILEAD-2024-0683875

PATIENT
  Age: 62 Year
  Sex: Female
  Weight: 80.9 kg

DRUGS (18)
  1. AXICABTAGENE CILOLEUCEL [Suspect]
     Active Substance: AXICABTAGENE CILOLEUCEL
     Indication: Diffuse large B-cell lymphoma
     Dosage: 0.6X10^6 TO  2.4 X10^6  CAR-T CELLS
     Route: 042
     Dates: start: 20240722, end: 20240722
  2. FLUDARABINE [Concomitant]
     Active Substance: FLUDARABINE PHOSPHATE
     Indication: Lymphodepletion
     Dosage: UNK
     Dates: start: 20240717
  3. CYCLOPHOSPHAMIDE [Concomitant]
     Active Substance: CYCLOPHOSPHAMIDE
     Indication: Lymphodepletion
     Dosage: UNK
     Dates: start: 20240717
  4. ANAKINRA [Concomitant]
     Active Substance: ANAKINRA
     Dosage: 100 MG, Q8H
     Route: 042
     Dates: end: 20240803
  5. ANAKINRA [Concomitant]
     Active Substance: ANAKINRA
     Dosage: UNK
     Dates: start: 20240806
  6. METHOTREXATE [Concomitant]
     Active Substance: METHOTREXATE
  7. LORAZEPAM [Concomitant]
     Active Substance: LORAZEPAM
  8. ONDANSETRON [Concomitant]
     Active Substance: ONDANSETRON
  9. PROCHLORPERAZINE [Concomitant]
     Active Substance: PROCHLORPERAZINE
  10. FILGRASTIM [Concomitant]
     Active Substance: FILGRASTIM
  11. ACYCLOVIR [Concomitant]
     Active Substance: ACYCLOVIR
  12. CEFEPIME [Concomitant]
     Active Substance: CEFEPIME HYDROCHLORIDE
  13. FLUCONAZOLE [Concomitant]
     Active Substance: FLUCONAZOLE
  14. MORPHINE [Concomitant]
     Active Substance: MORPHINE
  15. CALCIUM GLUCONATE [Concomitant]
     Active Substance: CALCIUM GLUCONATE
  16. MAGNESIUM SULFATE [Concomitant]
     Active Substance: MAGNESIUM SULFATE\MAGNESIUM SULFATE HEPTAHYDRATE
  17. POTASSIUM CHLORIDE [Concomitant]
     Active Substance: POTASSIUM CHLORIDE
  18. PANTOPRAZOLE [Concomitant]
     Active Substance: PANTOPRAZOLE

REACTIONS (11)
  - Cytokine release syndrome [Unknown]
  - Immune effector cell-associated neurotoxicity syndrome [Recovered/Resolved]
  - Immune effector cell-associated neurotoxicity syndrome [Unknown]
  - Haemophagocytic lymphohistiocytosis [Unknown]
  - Nervous system disorder [Fatal]
  - Neurotoxicity [Fatal]
  - Ischaemia [Fatal]
  - Brain oedema [Fatal]
  - Cerebrovascular accident [Fatal]
  - Encephalopathy [Unknown]
  - Lymphoma [Unknown]

NARRATIVE: CASE EVENT DATE: 20240722
